FAERS Safety Report 22169176 (Version 2)
Quarter: 2023Q2

REPORT INFORMATION
  Report Type: Report from Study
  Country: AT (occurrence: AT)
  Receive Date: 20230404
  Receipt Date: 20230414
  Transmission Date: 20230721
  Serious: Yes (Death)
  Sender: FDA-Public Use
  Company Number: AT-002147023-NVSC2023AT075528

PATIENT
  Age: 4 Year
  Sex: Male

DRUGS (2)
  1. TRAMETINIB [Suspect]
     Active Substance: TRAMETINIB
     Indication: Neurofibromatosis
     Dosage: 0.032 MG/KG, QD (STRENGTH: 5MG, FORMULATION: POWDER IN BOTTLE)
     Route: 065
     Dates: start: 202101
  2. TRAMETINIB [Suspect]
     Active Substance: TRAMETINIB
     Indication: Glioma

REACTIONS (4)
  - Glioma [Fatal]
  - Malignant neoplasm progression [Fatal]
  - Product dose omission issue [Unknown]
  - Product supply issue [Unknown]
